FAERS Safety Report 13537684 (Version 2)
Quarter: 2018Q2

REPORT INFORMATION
  Report Type: Report from Study
  Country: CA (occurrence: CA)
  Receive Date: 20170511
  Receipt Date: 20180423
  Transmission Date: 20180711
  Serious: Yes (Hospitalization)
  Sender: FDA-Public Use
  Company Number: CA-ACTELION-A-NJ2017-150225

PATIENT
  Age: 70 Year
  Sex: Female
  Weight: 59.86 kg

DRUGS (13)
  1. VITAMIN B [Concomitant]
     Active Substance: VITAMIN B
  2. FOLIC ACID. [Concomitant]
     Active Substance: FOLIC ACID
  3. LOSEC [Concomitant]
     Active Substance: OMEPRAZOLE
  4. TYLENOL WITH CODEINE [Concomitant]
     Active Substance: ACETAMINOPHEN\CODEINE PHOSPHATE
  5. SILDENAFIL. [Concomitant]
     Active Substance: SILDENAFIL
     Indication: PULMONARY ARTERIAL HYPERTENSION
  6. SPIRONOLACTONE. [Concomitant]
     Active Substance: SPIRONOLACTONE
  7. CARIPUL [Suspect]
     Active Substance: EPOPROSTENOL
     Indication: PULMONARY ARTERIAL HYPERTENSION
     Dosage: UNK
     Route: 042
     Dates: start: 20150515
  8. CARIPUL [Suspect]
     Active Substance: EPOPROSTENOL
     Dosage: UNK
     Route: 042
  9. OPSUMIT [Suspect]
     Active Substance: MACITENTAN
     Indication: PULMONARY ARTERIAL HYPERTENSION
     Dosage: 10 MG, UNK
     Route: 048
     Dates: start: 20160620
  10. L-ARGININE [Concomitant]
     Active Substance: ARGININE
  11. COENZYME Q10 [Concomitant]
     Active Substance: UBIDECARENONE
  12. MAGNESIUM [Concomitant]
     Active Substance: MAGNESIUM
     Dosage: UNK, PRN
  13. LASIX [Concomitant]
     Active Substance: FUROSEMIDE

REACTIONS (4)
  - Malaise [Recovered/Resolved]
  - Device alarm issue [Recovered/Resolved]
  - Transient ischaemic attack [Unknown]
  - Loss of consciousness [Recovered/Resolved]

NARRATIVE: CASE EVENT DATE: 20170502
